FAERS Safety Report 26013476 (Version 2)
Quarter: 2025Q4

REPORT INFORMATION
  Report Type: Spontaneous
  Country: US (occurrence: US)
  Receive Date: 20251107
  Receipt Date: 20251112
  Transmission Date: 20260118
  Serious: Yes (Other)
  Sender: NOVO NORDISK
  Company Number: US-NOVOPROD-1554015

PATIENT
  Age: 58 Year
  Sex: Female

DRUGS (2)
  1. OZEMPIC [Suspect]
     Active Substance: SEMAGLUTIDE
     Indication: Type 2 diabetes mellitus
     Dosage: 1 MG, QW
     Dates: start: 2022, end: 2023
  2. GLIPIZIDE [Concomitant]
     Active Substance: GLIPIZIDE
     Indication: Product used for unknown indication
     Dosage: UNK

REACTIONS (4)
  - Pancreatic cystadenoma [Recovered/Resolved]
  - Urinary retention [Unknown]
  - Pancreatic pseudocyst [Recovered/Resolved]
  - Diabetes mellitus inadequate control [Unknown]

NARRATIVE: CASE EVENT DATE: 20230101
